FAERS Safety Report 24616488 (Version 1)
Quarter: 2024Q4

REPORT INFORMATION
  Report Type: Spontaneous
  Country: GB (occurrence: GB)
  Receive Date: 20241114
  Receipt Date: 20241114
  Transmission Date: 20250115
  Serious: Yes (Other)
  Sender: NOVO NORDISK
  Company Number: None

PATIENT
  Age: 40 Year
  Sex: Male
  Weight: 130 kg

DRUGS (4)
  1. RYBELSUS [Suspect]
     Active Substance: SEMAGLUTIDE
     Indication: Type 2 diabetes mellitus
     Dosage: 3 MG, QD (ONE TABLET WITH SIP OF WATER 30 MINUTES BEFORE EATING DRINKING OR TAKING OTHER MEDICATION)
     Dates: start: 20240904, end: 20241008
  2. FOLIC ACID [Concomitant]
     Active Substance: FOLIC ACID
     Indication: Hypokalaemia
     Dosage: 1 DF, QD
     Dates: start: 20240821
  3. METFORMIN [Concomitant]
     Active Substance: METFORMIN HYDROCHLORIDE
     Dosage: 1 DF, QD (ONE TO BE TAKEN EACH DAY WITH EVENING MEAL)
     Dates: start: 20240821
  4. SPIKEVAX [Concomitant]
     Active Substance: CX-046684
     Dosage: 0.5 ML
     Route: 030
     Dates: start: 20241011, end: 20241011

REACTIONS (2)
  - Blood pressure increased [Unknown]
  - Headache [Unknown]

NARRATIVE: CASE EVENT DATE: 20240904
